FAERS Safety Report 4554360-1 (Version None)
Quarter: 2004Q4

REPORT INFORMATION
  Report Type: 
  Country: None (occurrence: None)
  Receive Date: 20041227
  Receipt Date: 20041004
  Transmission Date: 20050328
  Serious: No
  Sender: FDA-Public Use
  Company Number: 04P-163-0275937-00

PATIENT
  Age: 65 Year
  Sex: Female
  Weight: 90.7194 kg

DRUGS (11)
  1. HUMIRA [Suspect]
     Indication: RHEUMATOID ARTHRITIS
     Dosage: 40 MG, 1 IN 2 WK, SUBCUTANEOUS
     Route: 058
     Dates: start: 20030101, end: 20040401
  2. HUMIRA [Suspect]
     Indication: RHEUMATOID ARTHRITIS
     Dosage: 40 MG, 1 IN 2 WK, SUBCUTANEOUS
     Route: 058
     Dates: start: 20040401
  3. GLIPIZIDE [Concomitant]
  4. GLUCOPHAGE [Concomitant]
  5. METHOTREXATE [Concomitant]
  6. ATORVASTATIN [Concomitant]
  7. FUROSEMIDE [Concomitant]
  8. ALENDRONATE SODIUM [Concomitant]
  9. IRBESARTAN [Concomitant]
  10. ACETYLSALICYLIC ACID SRT [Concomitant]
  11. NAPROXEN SODIUM [Concomitant]

REACTIONS (5)
  - COUGH [None]
  - INCREASED BRONCHIAL SECRETION [None]
  - INJECTION SITE RASH [None]
  - PNEUMONIA [None]
  - RHEUMATOID ARTHRITIS [None]
